FAERS Safety Report 16399159 (Version 2)
Quarter: 2019Q2

REPORT INFORMATION
  Report Type: Spontaneous
  Country: US (occurrence: US)
  Receive Date: 20190606
  Receipt Date: 20190626
  Transmission Date: 20190711
  Serious: Yes (Hospitalization, Other)
  Sender: FDA-Public Use
  Company Number: US-SIGMAPHARM LABORATORIES, LLC-2019SIG00049

PATIENT
  Age: 70 Year
  Sex: Female
  Weight: 60.77 kg

DRUGS (12)
  1. LIOTHYRONINE (MAYNE) [Suspect]
     Active Substance: LIOTHYRONINE
     Dosage: 10 MCG, 2X/DAY
     Route: 048
     Dates: start: 201810
  2. LIOTHYRONINE (MAYNE) [Suspect]
     Active Substance: LIOTHYRONINE
     Indication: HYPOTHYROIDISM
     Dosage: 10 MCG, 2X/DAY
     Route: 048
     Dates: start: 201808, end: 201809
  3. IODORAL [Concomitant]
     Active Substance: IODINE\POTASSIUM IODIDE
     Dosage: UNK UNK, 2X/DAY
  4. LIOTHYRONINE SODIUM. [Suspect]
     Active Substance: LIOTHYRONINE SODIUM
     Indication: HYPOTHYROIDISM
     Dosage: 5 MCG, 2X/DAY
     Route: 048
     Dates: start: 200109, end: 2018
  5. LIOTHYRONINE (MAYNE) [Suspect]
     Active Substance: LIOTHYRONINE
     Dosage: 10 MCG, 2X/DAY
     Route: 048
     Dates: start: 201903
  6. CORTEF [Concomitant]
     Active Substance: HYDROCORTISONE
     Dosage: 10 MG, 2X/DAY
     Dates: start: 200206, end: 201809
  7. ADRENAL SUPPORT [Concomitant]
     Active Substance: HOMEOPATHICS
     Dosage: UNK UNK, 2X/DAY
     Dates: start: 201809
  8. BIEST [Concomitant]
     Active Substance: ESTRADIOL\ESTRIOL
     Dosage: UNK, 2X/DAY
     Route: 061
  9. DIFLUNISAL. [Concomitant]
     Active Substance: DIFLUNISAL
     Dosage: 1 TABLETS, 2X/DAY
  10. LIOTHYRONINE SODIUM. [Suspect]
     Active Substance: LIOTHYRONINE SODIUM
     Dosage: 10 MCG, 2X/DAY
     Route: 048
     Dates: start: 2018, end: 201808
  11. LIOTHYRONINE SODIUM. [Suspect]
     Active Substance: LIOTHYRONINE SODIUM
     Dosage: 10 MCG, 2X/DAY
     Route: 048
     Dates: start: 201809, end: 201810
  12. LIOTHYRONINE SODIUM. [Suspect]
     Active Substance: LIOTHYRONINE SODIUM
     Dosage: 10 MCG, 2X/DAY
     Route: 048
     Dates: end: 201903

REACTIONS (9)
  - Madarosis [Recovering/Resolving]
  - Cardiac pacemaker insertion [Unknown]
  - Cardiac disorder [Unknown]
  - Drug ineffective [Unknown]
  - Atrioventricular block second degree [Unknown]
  - Pulmonary embolism [Unknown]
  - Atrial fibrillation [Unknown]
  - Atrioventricular block complete [Unknown]
  - Hypothyroidism [Unknown]

NARRATIVE: CASE EVENT DATE: 201403
